FAERS Safety Report 7252576-7 (Version None)
Quarter: 2011Q1

REPORT INFORMATION
  Report Type: 
  Country: None (occurrence: None)
  Receive Date: 20110129
  Receipt Date: 20100113
  Transmission Date: 20110831
  Serious: No
  Sender: FDA-Public Use
  Company Number: US-ABBOTT-10P-163-0620027-00

PATIENT
  Sex: Female
  Weight: 80.812 kg

DRUGS (5)
  1. VERCTIL CREAME [Concomitant]
     Indication: PSORIASIS
  2. HUMIRA [Suspect]
     Indication: PSORIASIS
     Route: 058
     Dates: start: 20040101
  3. LEXAPRO [Concomitant]
     Indication: STRESS
  4. CENTERIMINE [Concomitant]
     Indication: WEIGHT DECREASED
  5. HUMIRA [Suspect]
     Indication: PSORIASIS
     Route: 058

REACTIONS (12)
  - DIARRHOEA [None]
  - PHOTOSENSITIVITY REACTION [None]
  - MUSCLE SPASMS [None]
  - VAGINAL HAEMORRHAGE [None]
  - INFLUENZA [None]
  - BACK PAIN [None]
  - ASTHENIA [None]
  - ABDOMINAL PAIN [None]
  - ABDOMINAL DISTENSION [None]
  - FLATULENCE [None]
  - NAUSEA [None]
  - ARTHRALGIA [None]
